FAERS Safety Report 11511034 (Version 1)
Quarter: 2015Q3

REPORT INFORMATION
  Report Type: Spontaneous
  Country: US (occurrence: US)
  Receive Date: 20150915
  Receipt Date: 20150915
  Transmission Date: 20151125
  Serious: Yes (Hospitalization)
  Sender: FDA-Public Use
  Company Number: US-NPS_PHARMACEUTICALS-002278

PATIENT
  Age: 37 Year
  Sex: Female

DRUGS (2)
  1. GATTEX [Suspect]
     Active Substance: TEDUGLUTIDE\WATER
     Indication: SHORT-BOWEL SYNDROME
     Dosage: DF
     Route: 058
     Dates: start: 20150601, end: 20150814
  2. HYDRATION [Concomitant]
     Active Substance: UNSPECIFIED INGREDIENT
     Dosage: DF

REACTIONS (6)
  - Abdominal pain [Unknown]
  - Temperature difference of extremities [Unknown]
  - Drug dose omission [Not Recovered/Not Resolved]
  - Sepsis [Recovering/Resolving]
  - Nausea [Unknown]
  - Amenorrhoea [Unknown]

NARRATIVE: CASE EVENT DATE: 2015
